FAERS Safety Report 9379862 (Version 1)
Quarter: 2013Q3

REPORT INFORMATION
  Report Type: Spontaneous
  Country: IL (occurrence: IL)
  Receive Date: 20130702
  Receipt Date: 20130702
  Transmission Date: 20140515
  Serious: Yes (Other)
  Sender: FDA-Public Use
  Company Number: IL-SPECTRUM PHARMACEUTICALS, INC.-13-F-IL-00183

PATIENT
  Sex: 0

DRUGS (5)
  1. FLUOROURACIL [Suspect]
     Indication: SQUAMOUS CELL CARCINOMA OF HEAD AND NECK
     Dosage: 750 MG/M2/DAY GIVEN AS A CONTINOUS INFUSION ON DAYS 1-5 EVERY 3 WEEKS
     Route: 042
  2. DOCETAXEL [Suspect]
     Indication: SQUAMOUS CELL CARCINOMA OF HEAD AND NECK
     Dosage: 75 MG/M2 ON DAY 1; EVERY 3 WEEKS
     Route: 042
  3. CISPLATIN [Suspect]
     Indication: SQUAMOUS CELL CARCINOMA OF HEAD AND NECK
     Dosage: 75 MG/M2 ON DAY 1; EVERY 3 WEEKS
     Route: 042
  4. CIPROFLOXACIN [Concomitant]
     Indication: ANTIBIOTIC PROPHYLAXIS
     Dosage: ON DAY 5 OF EACH CYCLE X 10 DAYS
     Route: 065
  5. DEXAMETHASONE [Concomitant]
     Indication: PREMEDICATION
     Dosage: STARTED 12 HRS PRIOR TO DOCETAXEL
     Route: 065

REACTIONS (16)
  - Acute coronary syndrome [Unknown]
  - Electrolyte imbalance [Unknown]
  - Disease progression [Unknown]
  - Neutropenia [Unknown]
  - Febrile neutropenia [Unknown]
  - Anaemia [Unknown]
  - Thrombocytopenia [Unknown]
  - Diarrhoea [Unknown]
  - Vomiting [Unknown]
  - Nausea [Unknown]
  - Mucosal inflammation [Unknown]
  - Bone marrow failure [Unknown]
  - Dysphagia [None]
  - Oesophagitis [None]
  - Lethargy [Unknown]
  - Renal failure [Unknown]
